FAERS Safety Report 4679396-1 (Version None)
Quarter: 2005Q2

REPORT INFORMATION
  Report Type: 
  Country: None (occurrence: None)
  Receive Date: 20050531
  Receipt Date: 20050517
  Transmission Date: 20051028
  Serious: Yes (Other)
  Sender: FDA-Public Use
  Company Number: B0361005A

PATIENT
  Sex: Female

DRUGS (4)
  1. PAXIL [Suspect]
     Dosage: SEE DOSAGE TEXT
     Dates: start: 19960101
  2. VENLAFAXINE HCL [Concomitant]
  3. MIRTAZAPINE [Concomitant]
  4. DIAZEPAM [Concomitant]

REACTIONS (28)
  - ABORTION SPONTANEOUS [None]
  - AGITATION [None]
  - ANOREXIA [None]
  - ANXIETY [None]
  - APATHY [None]
  - CONTUSION [None]
  - DEPRESSED MOOD [None]
  - DEPRESSION [None]
  - DRUG EXPOSURE DURING PREGNANCY [None]
  - DRUG INEFFECTIVE [None]
  - DRUG WITHDRAWAL SYNDROME [None]
  - DYSPHAGIA [None]
  - DYSPNOEA [None]
  - ECONOMIC PROBLEM [None]
  - FEELING ABNORMAL [None]
  - FLUSHING [None]
  - FOOD CRAVING [None]
  - HEART RATE INCREASED [None]
  - HYPERVENTILATION [None]
  - INSOMNIA [None]
  - LETHARGY [None]
  - NAUSEA [None]
  - NIGHT SWEATS [None]
  - PANIC ATTACK [None]
  - PARAESTHESIA [None]
  - RESTLESSNESS [None]
  - SUICIDAL IDEATION [None]
  - TEARFULNESS [None]
